FAERS Safety Report 21095542 (Version 6)
Quarter: 2023Q2

REPORT INFORMATION
  Report Type: Spontaneous
  Country: US (occurrence: US)
  Receive Date: 20220718
  Receipt Date: 20230525
  Transmission Date: 20230722
  Serious: No
  Sender: FDA-Public Use
  Company Number: US-PFIZER INC-PV202200023521

PATIENT
  Age: 68 Year
  Sex: Female
  Weight: 76.2 kg

DRUGS (2)
  1. IBRANCE [Suspect]
     Active Substance: PALBOCICLIB
     Indication: Breast cancer metastatic
     Dosage: 1 TABLET FOR 21 DAYS AND THEN OFF A WEEK
  2. IBRANCE [Suspect]
     Active Substance: PALBOCICLIB
     Dosage: 125 MG
     Dates: start: 20230218

REACTIONS (5)
  - Hormone level abnormal [Unknown]
  - Cold urticaria [Unknown]
  - Anaemia [Unknown]
  - Renal disorder [Unknown]
  - Bladder disorder [Unknown]
